FAERS Safety Report 10515141 (Version 1)
Quarter: 2014Q4

REPORT INFORMATION
  Report Type: Spontaneous
  Country: US (occurrence: US)
  Receive Date: 20141014
  Receipt Date: 20141014
  Transmission Date: 20150528
  Serious: Yes (Hospitalization, Other)
  Sender: FDA-Public Use
  Company Number: US-JNJFOC-20141001269

PATIENT
  Age: 24 Year
  Sex: Female

DRUGS (1)
  1. PARACETAMOL [Suspect]
     Active Substance: ACETAMINOPHEN
     Indication: PYREXIA
     Dosage: 1-2 G FOR 3 DAYS
     Route: 065

REACTIONS (5)
  - Acute hepatic failure [Recovering/Resolving]
  - Systemic inflammatory response syndrome [Unknown]
  - Lung infiltration [Unknown]
  - Exposure during pregnancy [Unknown]
  - Premature labour [Unknown]
